FAERS Safety Report 24264914 (Version 1)
Quarter: 2024Q3

REPORT INFORMATION
  Report Type: Spontaneous
  Country: CN (occurrence: CN)
  Receive Date: 20240829
  Receipt Date: 20240829
  Transmission Date: 20241016
  Serious: Yes (Hospitalization, Other)
  Sender: BRISTOL MYERS SQUIBB
  Company Number: CN-BRISTOL-MYERS SQUIBB COMPANY-2024-137238

PATIENT
  Age: 82 Year
  Sex: Male
  Weight: 76 kg

DRUGS (5)
  1. OPDIVO [Suspect]
     Active Substance: NIVOLUMAB
     Indication: Hepatic cancer
     Dosage: DRUG USE-TIMES: 1 AND DRUG USE-DAYS:1.
     Route: 041
     Dates: start: 20240202, end: 20240621
  2. OPDIVO [Suspect]
     Active Substance: NIVOLUMAB
     Dosage: DRUG USE-TIMES: 1 AND DRUG USE-DAYS:1.
     Route: 041
     Dates: start: 20240719
  3. YERVOY [Suspect]
     Active Substance: IPILIMUMAB
     Indication: Hepatic cancer
     Dosage: DRUG USE-TIMES: 1 AND DRUG USE-DAYS:1.
     Route: 041
     Dates: start: 20240322, end: 20240520
  4. SODIUM CHLORIDE [Concomitant]
     Active Substance: SODIUM CHLORIDE
     Indication: Hepatic cancer
     Route: 042
     Dates: start: 20240322
  5. SODIUM CHLORIDE [Concomitant]
     Active Substance: SODIUM CHLORIDE
     Route: 042
     Dates: start: 20240202

REACTIONS (1)
  - Pemphigus [Recovering/Resolving]

NARRATIVE: CASE EVENT DATE: 20240812
